FAERS Safety Report 20289766 (Version 5)
Quarter: 2022Q1

REPORT INFORMATION
  Report Type: Report from Study
  Country: CA (occurrence: CA)
  Receive Date: 20220104
  Receipt Date: 20220308
  Transmission Date: 20220423
  Serious: Yes (Hospitalization, Other)
  Sender: FDA-Public Use
  Company Number: CA-TAKEDA-2022TUS000154

PATIENT
  Age: 70 Year
  Sex: Male

DRUGS (4)
  1. VEDOLIZUMAB [Suspect]
     Active Substance: VEDOLIZUMAB
     Indication: Colitis ulcerative
     Dosage: 300 MILLIGRAM
     Route: 042
     Dates: start: 20190221
  2. VEDOLIZUMAB [Suspect]
     Active Substance: VEDOLIZUMAB
     Dosage: 300 MILLIGRAM
     Route: 042
  3. IMURAN [Concomitant]
     Active Substance: AZATHIOPRINE
     Dosage: UNK
     Dates: start: 20190122
  4. Salofalk [Concomitant]
     Dosage: UNK
     Dates: start: 20180714

REACTIONS (8)
  - Ureteral stent insertion [Unknown]
  - Hospitalisation [Unknown]
  - Blindness [Not Recovered/Not Resolved]
  - Retinal tear [Unknown]
  - Nephrolithiasis [Unknown]
  - Retinal detachment [Unknown]
  - Cystitis [Unknown]
  - Urinary tract infection [Unknown]

NARRATIVE: CASE EVENT DATE: 20211001
